FAERS Safety Report 5664938-X (Version None)
Quarter: 2008Q1

REPORT INFORMATION
  Report Type: 
  Country: None (occurrence: None)
  Receive Date: 20080314
  Receipt Date: 20080303
  Transmission Date: 20080703
  Serious: Yes (Hospitalization)
  Sender: FDA-Public Use
  Company Number: DE-ELI_LILLY_AND_COMPANY-DE200803000503

PATIENT
  Age: 78 Year
  Sex: Male

DRUGS (24)
  1. CYMBALTA [Suspect]
     Indication: DEPRESSION
     Dosage: 60 MG, DAILY (1/D)
     Route: 065
  2. DIAZEPAM [Concomitant]
     Indication: DEPRESSION
     Dosage: 15 MG, DAILY (1/D)
     Route: 065
  3. DIAZEPAM [Concomitant]
     Dosage: 5 MG, AS NEEDED
     Route: 065
  4. DIAZEPAM [Concomitant]
     Dosage: 20 MG, DAILY (1/D)
     Route: 065
  5. DIAZEPAM [Concomitant]
     Dosage: 10 MG, DAILY (1/D)
     Route: 065
  6. MELPERON [Concomitant]
     Indication: ANXIETY
     Dosage: 25 MG, DAILY (1/D)
     Route: 065
  7. MELPERON [Concomitant]
     Dosage: 100 MG, DAILY (1/D)
     Route: 065
  8. ZOLPIDEM [Concomitant]
     Indication: SLEEP DISORDER
     Dosage: 10 MG, DAILY (1/D)
     Route: 065
  9. ZALEPLON [Concomitant]
     Indication: SLEEP DISORDER
     Dosage: 10 MG, DAILY (1/D)
     Route: 065
  10. LORMETAZEPAM [Concomitant]
     Indication: SLEEP DISORDER
     Dosage: 2 MG, DAILY (1/D)
     Route: 065
  11. DONEPEZIL HCL [Concomitant]
     Indication: DEMENTIA
     Dosage: 5 MG, DAILY (1/D)
     Route: 065
  12. ASPIRIN [Concomitant]
     Indication: THROMBOSIS PROPHYLAXIS
     Dosage: UNK, UNKNOWN
     Route: 065
  13. CLOPIDOGREL [Concomitant]
     Indication: THROMBOSIS PROPHYLAXIS
     Dosage: UNK, UNKNOWN
     Route: 065
  14. NITRENDIPINE [Concomitant]
     Dosage: 20 MG, DAILY (1/D)
     Route: 065
  15. METOPROLOL TARTRATE [Concomitant]
     Dosage: 100 MG, DAILY (1/D)
     Route: 065
  16. HYDROCHLORZIDE [Concomitant]
     Dosage: 125 MG, DAILY (1/D)
     Route: 065
  17. TRIAMTERENE AND HYDROCHLOROTHIAZIDE [Concomitant]
     Dosage: 25MG/50MG, DAILY (1/D)
     Route: 065
  18. VALSARTAN [Concomitant]
     Dosage: 80 MG, DAILY (1/D)
     Route: 065
  19. PANTOPRAZOLE SODIUM [Concomitant]
     Dosage: 40 MG, DAILY (1/D)
     Route: 065
  20. BUTYLSCOPOLAMIN [Concomitant]
     Dosage: 20 MG, DAILY (1/D)
     Route: 065
  21. PREDNISOLONE [Concomitant]
     Indication: RASH
     Dosage: 10 MG, DAILY (1/D)
     Route: 065
  22. PREDNISOLONE [Concomitant]
     Dosage: 5 MG, DAILY (1/D)
     Route: 065
  23. CETIRIZIN [Concomitant]
     Indication: RASH
     Dosage: 20 MG, DAILY (1/D)
     Route: 065
  24. HYDROXYZINE [Concomitant]
     Indication: RASH
     Dosage: 50 MG, DAILY (1/D)
     Route: 065

REACTIONS (2)
  - HYPONATRAEMIA [None]
  - MUSCLE ATROPHY [None]
